FAERS Safety Report 12447036 (Version 1)
Quarter: 2016Q2

REPORT INFORMATION
  Report Type: Spontaneous
  Country: ES (occurrence: ES)
  Receive Date: 20160608
  Receipt Date: 20160608
  Transmission Date: 20160815
  Serious: Yes (Other)
  Sender: FDA-Public Use
  Company Number: ES-ASTELLAS-2016US021205

PATIENT
  Age: 72 Year
  Sex: Male

DRUGS (2)
  1. XTANDI [Suspect]
     Active Substance: ENZALUTAMIDE
     Route: 048
     Dates: start: 201307, end: 201403
  2. XTANDI [Suspect]
     Active Substance: ENZALUTAMIDE
     Indication: PROSTATE CANCER
     Route: 048
     Dates: start: 20121123, end: 201307

REACTIONS (13)
  - Anaemia [Recovering/Resolving]
  - General physical health deterioration [Unknown]
  - Exophthalmos [Unknown]
  - Spinal compression fracture [Unknown]
  - Pleural effusion [Recovered/Resolved]
  - Mood altered [Unknown]
  - Diplopia [Unknown]
  - Eye pain [Unknown]
  - Malignant neoplasm progression [Unknown]
  - Eye movement disorder [Unknown]
  - Prostatic specific antigen increased [Unknown]
  - Asthenia [Unknown]
  - Pain [Unknown]

NARRATIVE: CASE EVENT DATE: 201301
